FAERS Safety Report 6087350-0 (Version None)
Quarter: 2009Q1

REPORT INFORMATION
  Report Type: 
  Country: None (occurrence: None)
  Receive Date: 20090223
  Receipt Date: 20090216
  Transmission Date: 20090719
  Serious: Yes (Other)
  Sender: FDA-Public Use
  Company Number: B0557650A

PATIENT
  Age: 10 Year
  Sex: Male

DRUGS (4)
  1. RELENZA [Suspect]
     Indication: INFLUENZA
     Dosage: 10MG TWICE PER DAY
     Route: 055
     Dates: start: 20090130, end: 20090130
  2. PL [Concomitant]
     Indication: NASOPHARYNGITIS
     Dosage: 9G PER DAY
     Route: 048
     Dates: start: 20090129, end: 20090101
  3. HOKUNALIN [Concomitant]
     Indication: COUGH
     Dosage: 2MG PER DAY
     Route: 062
  4. AZUNOL [Concomitant]
     Indication: COUGH
     Route: 002

REACTIONS (2)
  - ABNORMAL BEHAVIOUR [None]
  - HALLUCINATION [None]
